FAERS Safety Report 25021032 (Version 1)
Quarter: 2025Q1

REPORT INFORMATION
  Report Type: Spontaneous
  Country: CN (occurrence: CN)
  Receive Date: 20250227
  Receipt Date: 20250227
  Transmission Date: 20250409
  Serious: Yes (Hospitalization, Other)
  Sender: JOHNSON AND JOHNSON
  Company Number: CN-JNJFOC-20250254484

PATIENT
  Age: 15 Year
  Sex: Male
  Weight: 75 kg

DRUGS (2)
  1. DARZALEX [Suspect]
     Active Substance: DARATUMUMAB
     Indication: Thrombocytopenia
     Route: 041
     Dates: start: 20250207, end: 20250207
  2. SODIUM CHLORIDE [Concomitant]
     Active Substance: SODIUM CHLORIDE
     Indication: Thrombocytopenia
     Route: 041
     Dates: start: 20250207, end: 20250207

REACTIONS (6)
  - Vision blurred [Unknown]
  - Nasal obstruction [Unknown]
  - Sensation of foreign body [Unknown]
  - Chest pain [Unknown]
  - Infusion related reaction [Unknown]
  - Off label use [Unknown]

NARRATIVE: CASE EVENT DATE: 20250207
